FAERS Safety Report 7086289-1 (Version None)
Quarter: 2010Q4

REPORT INFORMATION
  Report Type: 
  Country: None (occurrence: None)
  Receive Date: 20101105
  Receipt Date: 20101028
  Transmission Date: 20110411
  Serious: Yes (Hospitalization)
  Sender: FDA-Public Use
  Company Number: JP-MERCK-1010USA00683

PATIENT
  Age: 80 Year
  Sex: Female
  Weight: 43 kg

DRUGS (9)
  1. COZAAR [Suspect]
     Indication: HYPERTENSION
     Route: 048
     Dates: end: 20100917
  2. ARICEPT [Suspect]
     Indication: HYPERTENSION
     Route: 048
     Dates: end: 20100917
  3. OMEPRAZOLE [Concomitant]
     Route: 048
  4. VESICARE [Concomitant]
     Route: 048
  5. LUVOX [Concomitant]
     Route: 048
  6. BIOFERMIN [Concomitant]
     Route: 048
  7. MECOBALAMIN [Concomitant]
     Route: 048
  8. SERENACE [Concomitant]
     Route: 048
  9. DEPAS [Concomitant]
     Route: 048

REACTIONS (2)
  - BLOOD CREATINE PHOSPHOKINASE INCREASED [None]
  - MYALGIA [None]
